FAERS Safety Report 17857587 (Version 3)
Quarter: 2020Q3

REPORT INFORMATION
  Report Type: Spontaneous
  Country: RU (occurrence: RU)
  Receive Date: 20200604
  Receipt Date: 20200713
  Transmission Date: 20201103
  Serious: Yes (Hospitalization, Other)
  Sender: FDA-Public Use
  Company Number: RU-ADVANZ PHARMA-202005005933

PATIENT

DRUGS (33)
  1. PREDNISONE. [Suspect]
     Active Substance: PREDNISONE
     Indication: PRODUCT USED FOR UNKNOWN INDICATION
     Dosage: UNK, Q3H (8 TIMES DAILY)
     Route: 065
  2. METHYLPREDNISOLONE. [Suspect]
     Active Substance: METHYLPREDNISOLONE
     Indication: SYSTEMIC LUPUS ERYTHEMATOSUS
     Dosage: 8 DOSAGE FORM, QD
     Route: 048
  3. NIFEDIPINE. [Suspect]
     Active Substance: NIFEDIPINE
     Dosage: 30 MG, QD
     Route: 065
     Dates: start: 20190906, end: 20190911
  4. METHYLDOPA. [Suspect]
     Active Substance: METHYLDOPA
     Dosage: 1.5 DOSAGE FORM, QID
     Route: 065
     Dates: start: 20191009, end: 20191023
  5. METHYLDOPA. [Suspect]
     Active Substance: METHYLDOPA
     Dosage: 1.5 DOSAGE FORM, QID
     Route: 065
     Dates: start: 20191011, end: 20191023
  6. CEFTAROLINE FOSAMIL [Suspect]
     Active Substance: CEFTAROLINE FOSAMIL
     Indication: PRODUCT USED FOR UNKNOWN INDICATION
     Dosage: 600  MG+ SODIUM CHLORIDE SOLUTION 0.9% ?100.0  IV  DRIP WITHIN AN HOUR
     Route: 041
  7. CLEXANE [Suspect]
     Active Substance: ENOXAPARIN SODIUM
     Indication: EMBOLISM
     Dosage: 0.4 UNK, QD
     Route: 058
     Dates: start: 20190820, end: 20190915
  8. NIFEDIPINE. [Suspect]
     Active Substance: NIFEDIPINE
     Dosage: 30 MG, QD
     Route: 065
     Dates: start: 20190911, end: 20190915
  9. METHYLPREDNISOLONE. [Suspect]
     Active Substance: METHYLPREDNISOLONE
     Indication: PRODUCT USED FOR UNKNOWN INDICATION
     Dosage: 250.0 + SODIUM CHLORIDE SOLUTION 0.9% ? 100.0 IV DRIP WITHIN 30 MIN,  TWICE IN A WEEK
     Route: 041
  10. METHYLDOPA. [Suspect]
     Active Substance: METHYLDOPA
     Indication: PRODUCT USED FOR UNKNOWN INDICATION
     Dosage: 0.5 DOSAGE FORM, QD
     Route: 048
     Dates: start: 20190827, end: 20190830
  11. DIPYRIDAMOLE. [Suspect]
     Active Substance: DIPYRIDAMOLE
     Dosage: 75 MG, BID
     Route: 065
     Dates: start: 20191011, end: 20191123
  12. CEFEPIME HYDROCHLORIDE. [Suspect]
     Active Substance: CEFEPIME HYDROCHLORIDE
     Indication: PRODUCT USED FOR UNKNOWN INDICATION
     Dosage: AN UNKNOWN DOSE DOSAGE WITH SODIUM CHLORIDE SOLUTION 0.9%
     Route: 042
     Dates: start: 20190823, end: 20190901
  13. NIFEDIPINE. [Suspect]
     Active Substance: NIFEDIPINE
     Dosage: 60 MG IN THE MORNING AND 30 MG IN THE EVENING, BID
     Route: 065
     Dates: start: 20190917, end: 20191023
  14. METHYLDOPA. [Suspect]
     Active Substance: METHYLDOPA
     Dosage: 0.5 DOSAGE FORM, TID
     Route: 048
     Dates: start: 20190830, end: 20190903
  15. PROGESTERONE. [Suspect]
     Active Substance: PROGESTERONE
     Indication: ABORTION THREATENED
     Dosage: 400 MG, QD, FROM 14 WEEKS
     Route: 065
  16. FOSFOMYCIN [Suspect]
     Active Substance: FOSFOMYCIN
     Indication: PRODUCT USED FOR UNKNOWN INDICATION
     Dosage: 3 G, HS
     Route: 065
     Dates: start: 20190919, end: 20191023
  17. SUPRASTIN [Suspect]
     Active Substance: CHLOROPYRAMINE HYDROCHLORIDE
     Indication: PRODUCT USED FOR UNKNOWN INDICATION
     Dosage: 1 DF, IN EVENING
     Route: 048
     Dates: start: 20190903, end: 20190905
  18. CLEXANE [Suspect]
     Active Substance: ENOXAPARIN SODIUM
     Dosage: 0.4 UNK, BID
     Route: 058
     Dates: start: 20191011, end: 20191023
  19. FOSFOMYCIN [Suspect]
     Active Substance: FOSFOMYCIN
     Dosage: 3.0 G, QW, ON FRIDAY
     Route: 065
     Dates: start: 20191009, end: 20191023
  20. CEFEPIME HYDROCHLORIDE. [Suspect]
     Active Substance: CEFEPIME HYDROCHLORIDE
     Dosage: UNK
     Dates: end: 20190903
  21. NIFEDIPINE. [Suspect]
     Active Substance: NIFEDIPINE
     Indication: PRODUCT USED FOR UNKNOWN INDICATION
     Dosage: 30 MG, BID
     Route: 065
     Dates: start: 20190819, end: 20190917
  22. OMEPRAZOLE. [Suspect]
     Active Substance: OMEPRAZOLE
     Indication: PRODUCT USED FOR UNKNOWN INDICATION
     Dosage: 1 DOSAGE FORM, BID
     Route: 048
     Dates: start: 20190820, end: 20191023
  23. LEVOTHYROXINE SODIUM. [Suspect]
     Active Substance: LEVOTHYROXINE SODIUM
     Indication: PRODUCT USED FOR UNKNOWN INDICATION
     Dosage: UNK
     Route: 065
  24. AZATHIOPRINE. [Suspect]
     Active Substance: AZATHIOPRINE
     Indication: PRODUCT USED FOR UNKNOWN INDICATION
     Dosage: 50 MG, QD IN MORNING
     Route: 065
     Dates: start: 20191015, end: 20191021
  25. FOLIC ACID. [Suspect]
     Active Substance: FOLIC ACID
     Indication: PRODUCT USED FOR UNKNOWN INDICATION
     Dosage: 1 DOSAGE FORM, TID
     Route: 048
     Dates: start: 20190820, end: 20191023
  26. SUPRASTIN [Suspect]
     Active Substance: CHLOROPYRAMINE HYDROCHLORIDE
     Dosage: 1 DOSAGE FORM TWICE DAILY
     Route: 048
     Dates: start: 20190905, end: 20191023
  27. AZATHIOPRINE. [Suspect]
     Active Substance: AZATHIOPRINE
     Dosage: 50 MG, BID
     Route: 065
     Dates: start: 20191021, end: 20191023
  28. PREDNISOLONE. [Suspect]
     Active Substance: PREDNISOLONE
     Indication: PRODUCT USED FOR UNKNOWN INDICATION
     Dosage: 4 TABLETS IN THE MORNING, 3 TABLETS AT NOON, 1 TABLET IN THE EVENING
     Route: 048
     Dates: start: 20190820, end: 20191023
  29. MAGNESIUM SULFATE. [Suspect]
     Active Substance: MAGNESIUM SULFATE
     Indication: PRODUCT USED FOR UNKNOWN INDICATION
     Dosage: UNK
     Route: 041
  30. HYDROXYCHLOROQUINE SULFATE (AUTHORIZED GENERIC),PLAQUENIL [Suspect]
     Active Substance: HYDROXYCHLOROQUINE SULFATE
     Indication: PRODUCT USED FOR UNKNOWN INDICATION
     Dosage: 1 DF, BID,  1 TABLET AT NOON, 1 TABLET IN THE EVENING
     Route: 048
     Dates: start: 20190820, end: 20191023
  31. CLEXANE [Suspect]
     Active Substance: ENOXAPARIN SODIUM
     Dosage: 0.4 UNK, BID
     Route: 058
     Dates: start: 20190916, end: 20190926
  32. FERRIC HYDROXIDE POLYMALTOSE COMPLEX [Suspect]
     Active Substance: IRON POLYMALTOSE
     Indication: PRODUCT USED FOR UNKNOWN INDICATION
     Dosage: 1 DOSAGE FORM, TID
     Route: 048
     Dates: start: 20190820, end: 20191023
  33. METHYLPREDNISOLONE. [Suspect]
     Active Substance: METHYLPREDNISOLONE
     Dosage: SOLUTION  500.0 + SODIUM CHLORIDE SOLUTION 0.9% ? 100.0, 3 IV DRIP WITHIN  30  MIN, TWICE IN A WEEK
     Route: 041

REACTIONS (5)
  - Placental disorder [Unknown]
  - Placental insufficiency [Unknown]
  - Iron deficiency anaemia [Unknown]
  - Exposure during pregnancy [Unknown]
  - Pre-eclampsia [Unknown]
